FAERS Safety Report 18091297 (Version 1)
Quarter: 2020Q3

REPORT INFORMATION
  Report Type: Spontaneous
  Country: US (occurrence: US)
  Receive Date: 20200729
  Receipt Date: 20200729
  Transmission Date: 20201103
  Serious: No
  Sender: FDA-Public Use
  Company Number: None

PATIENT
  Age: 65 Year
  Sex: Male

DRUGS (1)
  1. ABIRATERONE TAB 250MG [Suspect]
     Active Substance: ABIRATERONE
     Route: 048
     Dates: start: 202004

REACTIONS (4)
  - Joint swelling [None]
  - Dyspnoea [None]
  - Hot flush [None]
  - Flushing [None]

NARRATIVE: CASE EVENT DATE: 20200729
